FAERS Safety Report 7675671-7 (Version None)
Quarter: 2011Q3

REPORT INFORMATION
  Report Type: 
  Country: None (occurrence: None)
  Receive Date: 20110810
  Receipt Date: 20110803
  Transmission Date: 20111222
  Serious: Yes (Other)
  Sender: FDA-Public Use
  Company Number: GB-B.I. PHARMACEUTICALS,INC./RIDGEFIELD-2011-UK-00836UK

PATIENT
  Age: 64 Year
  Sex: Male
  Weight: 79 kg

DRUGS (3)
  1. PRADAXA [Suspect]
     Indication: THROMBOSIS PROPHYLAXIS
     Dosage: DOSE 220MG, DOSAGE/ INTERVAL 1/1 DAYS
     Route: 048
     Dates: start: 20110712, end: 20110720
  2. NAPROXEN [Concomitant]
     Dosage: DOSE 500MG, DOSAGES/INTERVAL 2/1 DAYS
  3. SIMVASTATIN [Concomitant]
     Dosage: DOSE 20MG, DOSAGES/INTERVAL 1/1 DAYS

REACTIONS (3)
  - HAEMATOMA [None]
  - OEDEMA PERIPHERAL [None]
  - CONTUSION [None]
